FAERS Safety Report 6089341-2 (Version None)
Quarter: 2009Q1

REPORT INFORMATION
  Report Type: 
  Country: None (occurrence: None)
  Receive Date: 20090224
  Receipt Date: 20090216
  Transmission Date: 20090719
  Serious: Yes (Other)
  Sender: FDA-Public Use
  Company Number: PHEH2004US03596

PATIENT
  Sex: Female
  Weight: 93.877 kg

DRUGS (38)
  1. AREDIA [Suspect]
     Indication: BREAST CANCER METASTATIC
     Dosage: 90MG Q5WKS
     Route: 042
     Dates: start: 19970101, end: 20020805
  2. ZOMETA [Suspect]
     Dosage: 4MG EVERY 3-4 WEEKS
     Route: 042
     Dates: start: 20020101, end: 20031201
  3. CELEXA [Concomitant]
     Indication: DEPRESSION
     Dates: start: 20040901
  4. PRILOSEC [Concomitant]
  5. XELODA [Concomitant]
     Indication: BREAST CANCER
     Dosage: UNK QD
  6. CHEMOTHERAPEUTICS,OTHER [Concomitant]
     Indication: BREAST CANCER
     Dates: start: 19970101
  7. STEROIDS NOS [Concomitant]
     Route: 042
     Dates: start: 19970101, end: 20020101
  8. FLUOROURACIL [Concomitant]
     Route: 048
  9. FLUOROURACIL [Concomitant]
     Dosage: 900MG Q3WKS X 4
     Dates: start: 19980101, end: 19980406
  10. KLONOPIN [Concomitant]
     Indication: DEPRESSION
  11. ABRAXANE [Concomitant]
  12. CLARITIN [Concomitant]
  13. CIPRO [Concomitant]
  14. NEURONTIN [Concomitant]
  15. VIOXX [Concomitant]
  16. GEMZAR [Concomitant]
     Dosage: QWK X 3
     Route: 042
     Dates: start: 20030303, end: 20030804
  17. PROCRIT [Concomitant]
     Indication: ANAEMIA
     Dosage: 40,000 UNITS QWK AS NEEDED
     Dates: start: 20000101, end: 20060101
  18. KYTRIL [Concomitant]
  19. BENADRYL [Concomitant]
     Indication: PREMEDICATION
  20. SOLU-MEDROL [Concomitant]
     Indication: PREMEDICATION
  21. TAXOTERE [Concomitant]
     Dosage: 140MG Q3WKS X 4
     Route: 042
     Dates: start: 19980508, end: 19981026
  22. TAXOTERE [Concomitant]
     Dosage: 75MG Q3WKS X 4
     Route: 042
     Dates: start: 20010209, end: 20020204
  23. DECADRON #1 [Concomitant]
     Indication: PREMEDICATION
  24. CYTOXAN [Concomitant]
     Dosage: 900MG Q3WKS X4
     Route: 042
     Dates: start: 19980130, end: 19980406
  25. ADRIAMYCIN PFS [Concomitant]
     Dosage: 90MG Q3WK X4
     Route: 042
     Dates: start: 19980130, end: 19980406
  26. ARIMIDEX [Concomitant]
     Dosage: 1 MG, QD
     Dates: start: 19990528, end: 20000926
  27. AROMASIN [Concomitant]
     Dosage: 25 MG, QD
     Route: 048
     Dates: start: 20000924, end: 20010209
  28. AROMASIN [Concomitant]
     Dosage: 25 MG, QD
     Dates: start: 20011221, end: 20031204
  29. FEMARA [Concomitant]
     Dosage: 200 MG, QD
     Dates: start: 20020225, end: 20021020
  30. NAVELBINE [Concomitant]
     Dosage: 40MG QWK X 4
     Route: 042
     Dates: start: 20021218, end: 20030303
  31. AMBIEN [Concomitant]
  32. ATIVAN [Concomitant]
  33. DILAUDID [Concomitant]
  34. EPOGEN [Concomitant]
  35. ACYCLOVIR [Concomitant]
  36. LASIX [Concomitant]
  37. PLATELETS [Concomitant]
  38. RED BLOOD CELLS [Concomitant]

REACTIONS (49)
  - APICECTOMY [None]
  - BLINDNESS TRANSIENT [None]
  - BLOOD CALCIUM DECREASED [None]
  - BONE DISORDER [None]
  - BONE GRAFT [None]
  - BONE PAIN [None]
  - BRONCHITIS [None]
  - CERVIX CARCINOMA [None]
  - DEBRIDEMENT [None]
  - DENTAL OPERATION [None]
  - DEPRESSION [None]
  - DYSPNOEA EXERTIONAL [None]
  - ENDODONTIC PROCEDURE [None]
  - ERYTHEMA [None]
  - EXCESSIVE GRANULATION TISSUE [None]
  - FISTULA [None]
  - FRACTURE [None]
  - GINGIVAL BLEEDING [None]
  - GINGIVAL RECESSION [None]
  - HYPOAESTHESIA ORAL [None]
  - IMPAIRED HEALING [None]
  - INCISIONAL DRAINAGE [None]
  - INFLAMMATION [None]
  - MASS [None]
  - METASTATIC NEOPLASM [None]
  - NERVE BLOCK [None]
  - OBSTRUCTIVE AIRWAYS DISORDER [None]
  - ORAL SURGERY [None]
  - OSTEITIS [None]
  - OSTEOMYELITIS [None]
  - OSTEONECROSIS [None]
  - OSTEOSYNTHESIS [None]
  - PAIN [None]
  - PAIN IN JAW [None]
  - PERICARDIAL DISEASE [None]
  - PLEURAL EFFUSION [None]
  - PURULENT DISCHARGE [None]
  - SENSORY LOSS [None]
  - SEQUESTRECTOMY [None]
  - SOFT TISSUE INFECTION [None]
  - STREPTOCOCCAL INFECTION [None]
  - SWELLING FACE [None]
  - TOOTH DISORDER [None]
  - TOOTH EXTRACTION [None]
  - TOOTH INFECTION [None]
  - TRACHEOSTOMY [None]
  - TRISMUS [None]
  - UPPER RESPIRATORY TRACT INFECTION [None]
  - WOUND DRAINAGE [None]
